FAERS Safety Report 23577410 (Version 2)
Quarter: 2024Q1

REPORT INFORMATION
  Report Type: Spontaneous
  Country: CL (occurrence: CL)
  Receive Date: 20240228
  Receipt Date: 20240311
  Transmission Date: 20240410
  Serious: Yes (Hospitalization)
  Sender: FDA-Public Use
  Company Number: CL-BIOMARINAP-CL-2024-156134

PATIENT

DRUGS (1)
  1. VOXZOGO [Suspect]
     Active Substance: VOSORITIDE
     Indication: Osteochondrodysplasia
     Dosage: 0.50 MILLILITER, QD
     Route: 058
     Dates: start: 20230718

REACTIONS (2)
  - Medical device removal [Recovering/Resolving]
  - Vomiting [Recovering/Resolving]

NARRATIVE: CASE EVENT DATE: 20240201
